FAERS Safety Report 8381830-0 (Version None)
Quarter: 2012Q2

REPORT INFORMATION
  Report Type: 
  Country: None (occurrence: None)
  Receive Date: 20120522
  Receipt Date: 20120507
  Transmission Date: 20120825
  Serious: Yes (Other)
  Sender: FDA-Public Use
  Company Number: JPI-P-021330

PATIENT
  Age: 41 Year
  Sex: Female

DRUGS (4)
  1. XYREM [Suspect]
     Indication: NARCOLEPSY
     Dosage: ORAL 9 GM (4.5 GM, 2 IN 1 D), ORAL
     Route: 048
     Dates: start: 20090101
  2. XYREM [Suspect]
     Indication: NARCOLEPSY
     Dosage: ORAL 9 GM (4.5 GM, 2 IN 1 D), ORAL
     Route: 048
     Dates: end: 20120401
  3. XYREM [Suspect]
     Indication: NARCOLEPSY
     Dosage: ORAL 9 GM (4.5 GM, 2 IN 1 D), ORAL
     Route: 048
     Dates: start: 20120401
  4. MODAFANIL [Concomitant]

REACTIONS (2)
  - DIVERTICULITIS [None]
  - CONDITION AGGRAVATED [None]
